FAERS Safety Report 23221482 (Version 2)
Quarter: 2024Q4

REPORT INFORMATION
  Report Type: Report from Study
  Country: US (occurrence: US)
  Receive Date: 20231123
  Receipt Date: 20241205
  Transmission Date: 20250114
  Serious: Yes (Other)
  Sender: NOVARTIS
  Company Number: US-002147023-NVSC2023US249483

PATIENT
  Age: 85 Year
  Sex: Male

DRUGS (1)
  1. ENTRESTO [Suspect]
     Active Substance: SACUBITRIL\VALSARTAN
     Indication: Product used for unknown indication
     Dosage: 1 DOSAGE FORM, BID
     Route: 048
     Dates: start: 202211, end: 20231121

REACTIONS (4)
  - Atrial fibrillation [Unknown]
  - Thrombosis [Unknown]
  - Platelet count decreased [Recovered/Resolved]
  - Cardiac valve disease [Unknown]

NARRATIVE: CASE EVENT DATE: 20230601
